FAERS Safety Report 11515912 (Version 1)
Quarter: 2015Q3

REPORT INFORMATION
  Report Type: Spontaneous
  Country: BR (occurrence: BR)
  Receive Date: 20150916
  Receipt Date: 20150916
  Transmission Date: 20151125
  Serious: Yes (Other)
  Sender: FDA-Public Use
  Company Number: BR-SA-2015SA129863

PATIENT
  Age: 40 Year
  Sex: Female
  Weight: 51 kg

DRUGS (2)
  1. CLEXANE SAFETY LOCK [Suspect]
     Active Substance: ENOXAPARIN SODIUM
     Indication: PLANNING TO BECOME PREGNANT
     Dosage: STRENGTH: 40 MG?FORM: SYRINGE?ROUTE: SUBCUTANEOUS, ABDOMINAL REGION
     Route: 058
     Dates: start: 20150824, end: 20150830
  2. CLEXANE SAFETY LOCK [Suspect]
     Active Substance: ENOXAPARIN SODIUM
     Indication: THROMBOSIS PROPHYLAXIS
     Dosage: STRENGTH: 40 MG?FORM: SYRINGE?ROUTE: SUBCUTANEOUS, ABDOMINAL REGION
     Route: 058
     Dates: start: 20150824, end: 20150830

REACTIONS (7)
  - Injection site haematoma [Recovered/Resolved]
  - Injection site pain [Recovered/Resolved]
  - Menstruation irregular [Unknown]
  - Pharyngitis [Not Recovered/Not Resolved]
  - Skin discolouration [Recovered/Resolved]
  - Injection site haemorrhage [Recovered/Resolved]
  - Hepatic enzyme abnormal [Unknown]

NARRATIVE: CASE EVENT DATE: 20150824
